FAERS Safety Report 10430339 (Version 2)
Quarter: 2014Q3

REPORT INFORMATION
  Report Type: Spontaneous
  Country: GB (occurrence: None)
  Receive Date: 20140902
  Receipt Date: 20140915
  Transmission Date: 20150326
  Serious: Yes (Other)
  Sender: FDA-Public Use
  Company Number: GB-H14001-14-00449

PATIENT
  Age: 28 Year
  Sex: Female

DRUGS (1)
  1. CIPROFLOXACIN (CIPROFLOXACIN) (TABLETS) (CIPROFLOXACIN) [Suspect]
     Active Substance: CIPROFLOXACIN
     Indication: URINARY TRACT INFECTION
     Dosage: INTRA MUSCULAR
     Route: 048
     Dates: start: 201001, end: 20100219

REACTIONS (14)
  - Ulcer [None]
  - Irritable bowel syndrome [None]
  - Adrenal disorder [None]
  - Acne [None]
  - Alopecia [None]
  - Toxicity to various agents [None]
  - Multi-organ disorder [None]
  - Post viral fatigue syndrome [None]
  - Fatigue [None]
  - Food intolerance [None]
  - Incorrect route of drug administration [None]
  - Muscle atrophy [None]
  - Anhedonia [None]
  - Adverse drug reaction [None]
